FAERS Safety Report 14996028 (Version 1)
Quarter: 2018Q2

REPORT INFORMATION
  Report Type: Spontaneous
  Country: US (occurrence: US)
  Receive Date: 20180522
  Receipt Date: 20180522
  Transmission Date: 20180711
  Serious: Yes (Hospitalization)
  Sender: FDA-Public Use
  Company Number: None

PATIENT
  Age: 51 Year
  Sex: Male
  Weight: 113.6 kg

DRUGS (3)
  1. SITAGLIPTIN 100 MG QD [Concomitant]
  2. EMPAGLIFLOZIN [Suspect]
     Active Substance: EMPAGLIFLOZIN
     Indication: TYPE 2 DIABETES MELLITUS
     Route: 048
     Dates: start: 20180424, end: 20180515
  3. METFORMIN 1000 MG BID [Concomitant]

REACTIONS (5)
  - Weight decreased [None]
  - Metabolic acidosis [None]
  - Euglycaemic diabetic ketoacidosis [None]
  - Ankle fracture [None]
  - Diarrhoea [None]

NARRATIVE: CASE EVENT DATE: 20180516
